FAERS Safety Report 8608792-2 (Version None)
Quarter: 2012Q3

REPORT INFORMATION
  Report Type: 
  Country: None (occurrence: None)
  Receive Date: 20120821
  Receipt Date: 20120811
  Transmission Date: 20120928
  Serious: Yes (Hospitalization, Other)
  Sender: FDA-Public Use
  Company Number: US-ABBOTT-12P-163-0969318-00

PATIENT
  Sex: Female
  Weight: 116.22 kg

DRUGS (2)
  1. HUMIRA [Suspect]
     Indication: CROHN'S DISEASE
     Dates: start: 20090101
  2. PAXIL [Concomitant]
     Indication: ANXIETY

REACTIONS (21)
  - JOINT RANGE OF MOTION DECREASED [None]
  - OSTEOARTHRITIS [None]
  - SLEEP APNOEA SYNDROME [None]
  - INSOMNIA [None]
  - COLECTOMY [None]
  - DEAFNESS [None]
  - WHEELCHAIR USER [None]
  - DEVICE LEAKAGE [None]
  - FLATULENCE [None]
  - ABSCESS [None]
  - WEIGHT INCREASED [None]
  - DRUG INEFFECTIVE [None]
  - ANXIETY [None]
  - DIARRHOEA [None]
  - HERNIA [None]
  - COLOSTOMY [None]
  - ASTHMA [None]
  - DEPRESSION [None]
  - WEIGHT DECREASED [None]
  - PAIN [None]
  - BLOOD CHOLESTEROL INCREASED [None]
